FAERS Safety Report 11539228 (Version 2)
Quarter: 2015Q4

REPORT INFORMATION
  Report Type: Spontaneous
  Country: US (occurrence: US)
  Receive Date: 20150923
  Receipt Date: 20151006
  Transmission Date: 20160304
  Serious: No
  Sender: FDA-Public Use
  Company Number: US-ELI_LILLY_AND_COMPANY-US201508008204

PATIENT
  Sex: Male

DRUGS (2)
  1. CIALIS [Suspect]
     Active Substance: TADALAFIL
     Indication: PROSTATIC DISORDER
     Dosage: 20 MG, OTHER ( 20 MG EVERY THREE DAYS)
     Route: 048
  2. CIALIS [Suspect]
     Active Substance: TADALAFIL
     Indication: BLADDER DISORDER

REACTIONS (1)
  - Blood pressure increased [Unknown]
